FAERS Safety Report 4373398-0 (Version None)
Quarter: 2004Q2

REPORT INFORMATION
  Report Type: 
  Country: None (occurrence: None)
  Receive Date: 20040603
  Receipt Date: 20040521
  Transmission Date: 20050107
  Serious: Yes (Other)
  Sender: FDA-Public Use
  Company Number: 200412529BCC

PATIENT
  Sex: Male
  Weight: 61.2356 kg

DRUGS (2)
  1. ALEVE [Suspect]
     Indication: BACK PAIN
     Dosage: 880 MG, PRN, ORAL
     Route: 048
     Dates: end: 20040519
  2. ALEVE [Suspect]
     Indication: HEADACHE
     Dosage: 880 MG, PRN, ORAL
     Route: 048
     Dates: end: 20040519

REACTIONS (6)
  - ABDOMINAL PAIN UPPER [None]
  - CARDIOMEGALY [None]
  - CHEST WALL PAIN [None]
  - CONSTIPATION [None]
  - DIZZINESS [None]
  - NAUSEA [None]
